FAERS Safety Report 5866268-X (Version None)
Quarter: 2008Q3

REPORT INFORMATION
  Report Type: 
  Country: None (occurrence: None)
  Receive Date: 20080829
  Receipt Date: 20080822
  Transmission Date: 20090109
  Serious: Yes (Disabling)
  Sender: FDA-Public Use
  Company Number: GB-PFIZER INC-2008071044

PATIENT
  Age: 28 Year
  Sex: Male
  Weight: 115 kg

DRUGS (3)
  1. CHANTIX [Suspect]
     Indication: SMOKING CESSATION THERAPY
     Route: 048
     Dates: start: 20080606, end: 20080610
  2. IBUPROFEN [Concomitant]
     Indication: HEADACHE
     Route: 048
     Dates: start: 20080531, end: 20080531
  3. ACETAMINOPHEN [Concomitant]
     Indication: HEADACHE
     Route: 048
     Dates: start: 20080531, end: 20080531

REACTIONS (2)
  - CONFUSIONAL STATE [None]
  - DISORIENTATION [None]
